FAERS Safety Report 8549931-1 (Version None)
Quarter: 2012Q3

REPORT INFORMATION
  Report Type: 
  Country: None (occurrence: None)
  Receive Date: 20120720
  Receipt Date: 20120720
  Transmission Date: 20120928
  Serious: Yes (Hospitalization)
  Sender: FDA-Public Use
  Company Number: None

PATIENT
  Age: 76 Year
  Sex: Male
  Weight: 105.7 kg

DRUGS (1)
  1. WARFARIN SODIUM [Suspect]
     Dates: start: 20120628

REACTIONS (1)
  - INTERNATIONAL NORMALISED RATIO ABNORMAL [None]
